FAERS Safety Report 21609954 (Version 1)
Quarter: 2022Q4

REPORT INFORMATION
  Report Type: Spontaneous
  Country: SG (occurrence: SG)
  Receive Date: 20221117
  Receipt Date: 20221117
  Transmission Date: 20230113
  Serious: Yes (Other)
  Sender: FDA-Public Use
  Company Number: SG-EXELA PHARMA SCIENCES, LLC-2022EXL00030

PATIENT
  Age: 31 Year
  Sex: Male

DRUGS (3)
  1. GANCICLOVIR [Suspect]
     Active Substance: GANCICLOVIR
     Indication: Cytomegalovirus chorioretinitis
     Dosage: 2 MG/0.04 ML
     Dates: start: 20211209
  2. GANCICLOVIR [Suspect]
     Active Substance: GANCICLOVIR
     Dosage: 10 MG/0.2 ML
     Dates: start: 20211213
  3. FOSCARNET [Concomitant]
     Active Substance: FOSCARNET
     Indication: Cytomegalovirus viraemia
     Route: 042

REACTIONS (5)
  - Vitreous opacities [Recovered/Resolved]
  - Subretinal fluid [Recovered/Resolved]
  - Visual impairment [Recovering/Resolving]
  - Intraocular pressure increased [Recovering/Resolving]
  - Retinal oedema [Recovering/Resolving]

NARRATIVE: CASE EVENT DATE: 20211213
